FAERS Safety Report 21957126 (Version 1)
Quarter: 2023Q1

REPORT INFORMATION
  Report Type: Spontaneous
  Country: RU (occurrence: RU)
  Receive Date: 20230206
  Receipt Date: 20230206
  Transmission Date: 20230417
  Serious: Yes (Other)
  Sender: FDA-Public Use
  Company Number: RU-BAYER-2023P007968

PATIENT
  Age: 61 Year
  Sex: Male
  Weight: 110 kg

DRUGS (1)
  1. IOPROMIDE [Suspect]
     Active Substance: IOPROMIDE
     Indication: Scan with contrast
     Dosage: UNK
     Route: 040
     Dates: start: 20230126, end: 20230126

REACTIONS (4)
  - Hypersensitivity [Recovered/Resolved]
  - Burning sensation [Recovered/Resolved]
  - Hyperaemia [Recovered/Resolved]
  - Paraesthesia [None]

NARRATIVE: CASE EVENT DATE: 20230126
